FAERS Safety Report 21047141 (Version 1)
Quarter: 2022Q3

REPORT INFORMATION
  Report Type: Spontaneous
  Country: US (occurrence: None)
  Receive Date: 20220705
  Receipt Date: 20220705
  Transmission Date: 20221027
  Serious: No
  Sender: FDA-Public Use
  Company Number: None

PATIENT
  Sex: Female
  Weight: 76.66 kg

DRUGS (14)
  1. LAPATINIB DITOSYLATE [Suspect]
     Active Substance: LAPATINIB DITOSYLATE
  2. LOMOTIL [Concomitant]
  3. TUMS [Concomitant]
  4. PROMETHAZINE [Concomitant]
  5. ONDANSETRON [Concomitant]
  6. SERTRALINE [Concomitant]
  7. TYLENOL PM [Concomitant]
  8. FAMOTIDINE [Concomitant]
  9. LANSOPRAZOLE [Concomitant]
  10. AMBIEN [Concomitant]
     Active Substance: ZOLPIDEM TARTRATE
  11. ACETAMINOPHEN\HYDROCODONE [Concomitant]
     Active Substance: ACETAMINOPHEN\HYDROCODONE
  12. RESTORIL [Concomitant]
     Active Substance: TEMAZEPAM
  13. HEPARIN FLUSH [Concomitant]
  14. CATHFLO ACTIVASE [Concomitant]

REACTIONS (5)
  - Cough [None]
  - Pulmonary oedema [None]
  - Dyspnoea [None]
  - Therapy cessation [None]
  - Secretion discharge [None]
